FAERS Safety Report 7302980-3 (Version None)
Quarter: 2011Q1

REPORT INFORMATION
  Report Type: 
  Country: None (occurrence: None)
  Receive Date: 20110220
  Receipt Date: 20110210
  Transmission Date: 20110831
  Serious: Yes (Hospitalization)
  Sender: FDA-Public Use
  Company Number: GB-BRISTOL-MYERS SQUIBB COMPANY-15545759

PATIENT
  Age: 35 Year
  Sex: Male

DRUGS (2)
  1. PIRENZEPINE [Interacting]
  2. ABILIFY [Suspect]

REACTIONS (3)
  - DRUG INEFFECTIVE [None]
  - DRUG INTERACTION [None]
  - SALIVARY HYPERSECRETION [None]
